FAERS Safety Report 12651980 (Version 3)
Quarter: 2016Q4

REPORT INFORMATION
  Report Type: Report from Study
  Country: US (occurrence: US)
  Receive Date: 20160815
  Receipt Date: 20161024
  Transmission Date: 20170207
  Serious: Yes (Hospitalization)
  Sender: FDA-Public Use
  Company Number: US-ACTELION-A-US2016-140483

PATIENT
  Age: 84 Year
  Sex: Female

DRUGS (7)
  1. OXYGEN. [Concomitant]
     Active Substance: OXYGEN
     Dosage: UNK, CONT INFUS
  2. CALCIPOTRIENE. [Concomitant]
     Active Substance: CALCIPOTRIENE
     Dosage: M-F
     Route: 061
     Dates: start: 20141022
  3. ZETIA [Concomitant]
     Active Substance: EZETIMIBE
     Dosage: 10 MG, UNK
     Dates: start: 20150824
  4. LASIX [Concomitant]
     Active Substance: FUROSEMIDE
     Dosage: 20 MG, QD
     Dates: start: 20110906
  5. NITROSTAT [Concomitant]
     Active Substance: NITROGLYCERIN
     Dosage: 0.4 MG, UNK
     Dates: start: 20160323
  6. TRACLEER [Suspect]
     Active Substance: BOSENTAN
     Indication: PULMONARY ARTERIAL HYPERTENSION
     Dosage: 125 MG, BID
     Route: 048
     Dates: start: 201007
  7. REVATIO [Concomitant]
     Active Substance: SILDENAFIL CITRATE
     Dosage: 20 MG, TID
     Dates: start: 20160609

REACTIONS (9)
  - Pulmonary oedema [Unknown]
  - Palpitations [Unknown]
  - Abdominal pain [Recovered/Resolved]
  - Musculoskeletal pain [Unknown]
  - Osteoarthritis [Unknown]
  - Diarrhoea [Recovered/Resolved]
  - Hypokalaemia [Unknown]
  - Dyspnoea [Unknown]
  - Pneumonia [Recovered/Resolved]
